FAERS Safety Report 9699227 (Version 2)
Quarter: 2013Q4

REPORT INFORMATION
  Report Type: Spontaneous
  Country: US (occurrence: US)
  Receive Date: 20131120
  Receipt Date: 20131120
  Transmission Date: 20140711
  Serious: No
  Sender: FDA-Public Use
  Company Number: US-GILEAD-2008-0014769

PATIENT
  Age: 67 Year
  Sex: Female
  Weight: 130.63 kg

DRUGS (14)
  1. LETAIRIS [Suspect]
     Indication: PULMONARY ARTERIAL HYPERTENSION
     Route: 048
     Dates: start: 20080118, end: 20080317
  2. LETAIRIS [Suspect]
     Route: 048
     Dates: start: 20071220, end: 20080118
  3. NEXIUM [Concomitant]
     Indication: GASTROOESOPHAGEAL REFLUX DISEASE
     Route: 048
  4. LASIX [Concomitant]
     Indication: PULMONARY ARTERIAL HYPERTENSION
     Route: 048
  5. LEVOXYL [Concomitant]
     Indication: HYPOTHYROIDISM
     Route: 048
  6. WARFARIN SODIUM [Concomitant]
     Indication: ANTICOAGULANT THERAPY
     Route: 048
  7. WARFARIN SODIUM [Concomitant]
  8. RESTASIS [Concomitant]
     Indication: RESTLESS LEGS SYNDROME
     Route: 048
  9. LISINOPRIL [Concomitant]
     Indication: ESSENTIAL HYPERTENSION
     Route: 048
  10. FOSAMAX [Concomitant]
     Indication: OSTEOPOROSIS
     Route: 048
  11. AMBIEN [Concomitant]
     Indication: INSOMNIA
     Route: 048
  12. FENTANYL [Concomitant]
     Route: 062
  13. OXYCODONE [Concomitant]
     Route: 048
  14. FELOPINE [Concomitant]
     Route: 048

REACTIONS (4)
  - Fatigue [Recovered/Resolved]
  - Haemorrhoids [Not Recovered/Not Resolved]
  - Joint swelling [Not Recovered/Not Resolved]
  - Nasal congestion [Not Recovered/Not Resolved]
